FAERS Safety Report 20020762 (Version 2)
Quarter: 2021Q4

REPORT INFORMATION
  Report Type: Report from Study
  Country: MX (occurrence: MX)
  Receive Date: 20211101
  Receipt Date: 20211120
  Transmission Date: 20220303
  Serious: Yes (Other)
  Sender: FDA-Public Use
  Company Number: MX-NOVARTISPH-NVSC2021MX249344

PATIENT
  Age: 67 Year
  Sex: Male
  Weight: 62 kg

DRUGS (7)
  1. HYDROCHLOROTHIAZIDE\VALSARTAN [Suspect]
     Active Substance: HYDROCHLOROTHIAZIDE\VALSARTAN
     Indication: Hypertension
     Dosage: 1 DF, QD (STARTED 30 YEARS AGO APPROXIMATELY)
     Route: 048
  2. CONCORD 693 [Concomitant]
     Indication: Hypertension
     Dosage: 0.5 DF, QD (STOPPED A WEEK AGO)
     Route: 048
     Dates: start: 202101
  3. SPIRONOLACTONE [Concomitant]
     Active Substance: SPIRONOLACTONE
     Indication: Polyuria
     Dosage: 0.5 DF, QD
     Route: 048
     Dates: start: 202101
  4. LASIX [Concomitant]
     Active Substance: FUROSEMIDE
     Indication: Polyuria
     Dosage: 0.5 DF, QD
     Route: 048
     Dates: start: 202101
  5. NEXUS [Concomitant]
     Indication: Hypertension
     Dosage: 1 DF, QD (STARTED 10 YEARS AGO)
     Route: 048
     Dates: end: 202101
  6. ASPIRIN [Concomitant]
     Active Substance: ASPIRIN
     Indication: Anticoagulant therapy
     Dosage: 1 DF, QD (STARTED 30 YEARS AGO)
     Route: 048
  7. ENTRESTO [Concomitant]
     Active Substance: SACUBITRIL\VALSARTAN
     Indication: Product used for unknown indication
     Dosage: UNK
     Route: 065

REACTIONS (11)
  - Congestive cardiomyopathy [Unknown]
  - Hypoacusis [Not Recovered/Not Resolved]
  - Limb injury [Unknown]
  - Cardiac disorder [Not Recovered/Not Resolved]
  - Cardiomegaly [Unknown]
  - Arterial occlusive disease [Unknown]
  - Fall [Unknown]
  - Excessive cerumen production [Not Recovered/Not Resolved]
  - Swelling [Unknown]
  - Blood pressure increased [Unknown]
  - Tinnitus [Not Recovered/Not Resolved]

NARRATIVE: CASE EVENT DATE: 20210101
